FAERS Safety Report 7020484-2 (Version None)
Quarter: 2010Q3

REPORT INFORMATION
  Report Type: 
  Country: None (occurrence: None)
  Receive Date: 20100927
  Receipt Date: 20100601
  Transmission Date: 20110219
  Serious: Yes (Other)
  Sender: FDA-Public Use
  Company Number: 1000016432

PATIENT
  Sex: Female

DRUGS (1)
  1. DINOPROSTONE (DINOPROSTONE) (VAGINAL INSERT) [Suspect]
     Indication: LABOUR INDUCTION
     Dosage: (10 MG), VAGINAL
     Route: 067
     Dates: start: 20100101, end: 20100101

REACTIONS (3)
  - DRUG EXPOSURE DURING PREGNANCY [None]
  - PRECIPITATE LABOUR [None]
  - VAGINAL LACERATION [None]
